FAERS Safety Report 7718123-8 (Version None)
Quarter: 2011Q3

REPORT INFORMATION
  Report Type: 
  Country: None (occurrence: None)
  Receive Date: 20110830
  Receipt Date: 20110822
  Transmission Date: 20111222
  Serious: Yes (Death)
  Sender: FDA-Public Use
  Company Number: CA-JNJFOC-20110104963

PATIENT
  Sex: Male
  Weight: 87 kg

DRUGS (5)
  1. HYDROCORTISONE [Concomitant]
     Indication: PREMEDICATION
     Route: 042
  2. BENADRYL [Concomitant]
     Indication: PREMEDICATION
     Route: 048
  3. REMICADE [Suspect]
     Indication: CROHN'S DISEASE
     Dosage: LAST INFUSION
     Route: 042
     Dates: start: 20101126
  4. MERCAPTOPURINE [Concomitant]
     Dosage: 50-75 MG DAILY
  5. REMICADE [Suspect]
     Route: 042
     Dates: start: 20020101

REACTIONS (1)
  - COLON CANCER METASTATIC [None]
